FAERS Safety Report 7304937-5 (Version None)
Quarter: 2011Q1

REPORT INFORMATION
  Report Type: 
  Country: None (occurrence: None)
  Receive Date: 20110222
  Receipt Date: 20110217
  Transmission Date: 20110831
  Serious: Yes (Death, Hospitalization)
  Sender: FDA-Public Use
  Company Number: FR-SANOFI-AVENTIS-2011SA010123

PATIENT
  Age: 78 Year
  Sex: Female

DRUGS (9)
  1. KEPPRA [Concomitant]
     Route: 065
  2. ESOMEPRAZOLE [Concomitant]
     Route: 065
  3. IMOVANE [Concomitant]
     Route: 048
  4. COZAAR [Concomitant]
     Route: 048
  5. CORDARONE [Concomitant]
     Route: 065
  6. LEXOMIL [Concomitant]
     Route: 048
  7. AMLOR [Concomitant]
     Route: 048
  8. MEDROL [Concomitant]
     Route: 065
  9. LOVENOX [Suspect]
     Indication: ATRIAL FIBRILLATION
     Route: 058
     Dates: start: 20110101, end: 20110118

REACTIONS (3)
  - SHOCK HAEMORRHAGIC [None]
  - RECTAL HAEMORRHAGE [None]
  - COLITIS ISCHAEMIC [None]
